FAERS Safety Report 9329081 (Version 1)
Quarter: 2013Q2

REPORT INFORMATION
  Report Type: Spontaneous
  Country: US (occurrence: US)
  Receive Date: 20130604
  Receipt Date: 20130604
  Transmission Date: 20140414
  Serious: Yes (Other)
  Sender: FDA-Public Use
  Company Number: US-SANOFI-AVENTIS-2012SA076900

PATIENT
  Sex: Female

DRUGS (3)
  1. LANTUS [Suspect]
     Indication: DIABETES MELLITUS
     Dosage: DOSE:43 UNIT(S)
     Route: 058
  2. NOVOLOG [Suspect]
     Indication: DIABETES MELLITUS
     Dosage: DOSE:43 UNIT(S)
     Route: 058
  3. NOVOLOG [Suspect]
     Indication: DIABETES MELLITUS
     Route: 058

REACTIONS (4)
  - Hypoglycaemia [Unknown]
  - Wrong drug administered [Unknown]
  - Exposure during pregnancy [Unknown]
  - Diabetes mellitus inadequate control [Unknown]
